FAERS Safety Report 21156851 (Version 1)
Quarter: 2022Q3

REPORT INFORMATION
  Report Type: Spontaneous
  Country: ES (occurrence: ES)
  Receive Date: 20220801
  Receipt Date: 20220801
  Transmission Date: 20221026
  Serious: No
  Sender: FDA-Public Use
  Company Number: ES-PADAGIS-2022PAD00265

PATIENT

DRUGS (2)
  1. IBUPROFEN [Suspect]
     Active Substance: IBUPROFEN
     Indication: Skin lesion
     Dosage: UNK
     Route: 065
     Dates: start: 202010
  2. AMOXICILLIN\CLAVULANIC ACID [Suspect]
     Active Substance: AMOXICILLIN\CLAVULANIC ACID
     Indication: Skin lesion
     Dosage: UNK
     Route: 065
     Dates: start: 202010

REACTIONS (1)
  - Drug ineffective for unapproved indication [Unknown]
